FAERS Safety Report 9842042 (Version 1)
Quarter: 2014Q1

REPORT INFORMATION
  Report Type: Spontaneous
  Country: US (occurrence: None)
  Receive Date: 20140123
  Receipt Date: 20140123
  Transmission Date: 20141002
  Serious: Yes (Hospitalization)
  Sender: FDA-Public Use
  Company Number: None

PATIENT
  Age: 44 Year
  Sex: Female

DRUGS (1)
  1. CHLORPROMAZINE [Suspect]
     Indication: AGITATION
     Route: 030

REACTIONS (2)
  - Neuroleptic malignant syndrome [None]
  - Body temperature increased [None]
